FAERS Safety Report 20712659 (Version 1)
Quarter: 2022Q2

REPORT INFORMATION
  Report Type: Report from Study
  Country: US (occurrence: US)
  Receive Date: 20220415
  Receipt Date: 20220415
  Transmission Date: 20220720
  Serious: Yes (Other)
  Sender: FDA-Public Use
  Company Number: US-BIONICAL EMAS-2021ETO000132

PATIENT

DRUGS (2)
  1. ALKINDI SPRINKLE [Suspect]
     Active Substance: HYDROCORTISONE
     Indication: Hypopituitarism
     Dosage: 5 MG, BID
     Route: 048
     Dates: start: 20210901
  2. ALKINDI SPRINKLE [Suspect]
     Active Substance: HYDROCORTISONE
     Dosage: 5 MG, BID
     Route: 048
     Dates: start: 20210831

REACTIONS (9)
  - Cerebral cyst [Unknown]
  - Aggression [Not Recovered/Not Resolved]
  - Anger [Not Recovered/Not Resolved]
  - Limbal swelling [Unknown]
  - Erythema [Unknown]
  - Blood sodium decreased [Unknown]
  - Behaviour disorder [Not Recovered/Not Resolved]
  - Vomiting [Unknown]
  - Abdominal distension [Unknown]

NARRATIVE: CASE EVENT DATE: 20210901
